FAERS Safety Report 9881556 (Version 3)
Quarter: 2014Q1

REPORT INFORMATION
  Report Type: Spontaneous
  Country: US (occurrence: None)
  Receive Date: 20140205
  Receipt Date: 20140304
  Transmission Date: 20141002
  Serious: Yes (Other)
  Sender: FDA-Public Use
  Company Number: AUR-APL-2014-01194

PATIENT
  Sex: Male

DRUGS (1)
  1. MIRTAZAPINE (MIRTAZAPINE) [Suspect]
     Indication: INSOMNIA

REACTIONS (4)
  - Hypersomnia [None]
  - Anger [None]
  - Abnormal behaviour [None]
  - Mental disorder [None]
